FAERS Safety Report 16821293 (Version 1)
Quarter: 2019Q3

REPORT INFORMATION
  Report Type: Spontaneous
  Country: ES (occurrence: ES)
  Receive Date: 20190918
  Receipt Date: 20190918
  Transmission Date: 20191005
  Serious: Yes (Hospitalization)
  Sender: FDA-Public Use
  Company Number: ES-ACCORD-155172

PATIENT
  Age: 85 Year
  Sex: Male

DRUGS (3)
  1. HYDROCHLOROTHIAZIDE. [Interacting]
     Active Substance: HYDROCHLOROTHIAZIDE
     Indication: HYPERTENSION
     Dosage: 50 MG TABLETS, 20 TABLETS
     Route: 048
     Dates: start: 20190826, end: 20190829
  2. FUROSEMIDE. [Interacting]
     Active Substance: FUROSEMIDE
     Indication: CARDIAC FAILURE CONGESTIVE
     Dosage: 40 MG TABLETS, 30 TABLETS
     Route: 048
     Dates: start: 20190826, end: 20190830
  3. FUROSEMIDE. [Suspect]
     Active Substance: FUROSEMIDE
     Indication: CARDIAC FAILURE CONGESTIVE
     Dosage: 40 MG TABLETS, 30 TABLETS
     Route: 048
     Dates: start: 20170422, end: 20190825

REACTIONS (2)
  - Drug interaction [Unknown]
  - Acute kidney injury [Recovering/Resolving]

NARRATIVE: CASE EVENT DATE: 20190829
